FAERS Safety Report 7494808-6 (Version None)
Quarter: 2011Q2

REPORT INFORMATION
  Report Type: 
  Country: None (occurrence: None)
  Receive Date: 20110520
  Receipt Date: 20110512
  Transmission Date: 20111010
  Serious: Yes (Other)
  Sender: FDA-Public Use
  Company Number: A0927949A

PATIENT
  Age: 51 Year
  Sex: Female
  Weight: 61.4 kg

DRUGS (12)
  1. ARIMIDEX [Concomitant]
  2. ASPIRIN [Concomitant]
  3. BONE-UP [Concomitant]
  4. HERBAL SUPPLEMENT [Concomitant]
  5. FLOLAN [Suspect]
     Indication: PULMONARY ARTERIAL HYPERTENSION
     Dosage: 20NGKM UNKNOWN
     Route: 065
     Dates: start: 20070109
  6. OXYGEN [Concomitant]
  7. COENZYME Q10 [Concomitant]
  8. EFFEXOR [Concomitant]
  9. FISH OIL [Concomitant]
  10. LETAIRIS [Concomitant]
  11. REVATIO [Concomitant]
  12. ESSIAC TEA [Concomitant]

REACTIONS (1)
  - VISUAL ACUITY REDUCED [None]
